FAERS Safety Report 25035033 (Version 1)
Quarter: 2025Q1

REPORT INFORMATION
  Report Type: Spontaneous
  Country: US (occurrence: US)
  Receive Date: 20250304
  Receipt Date: 20250304
  Transmission Date: 20250408
  Serious: Yes (Hospitalization)
  Sender: EMCURE PHARMACEUTICALS LTD
  Company Number: US-AVET LIFESCIENCES LTD-2025-AVET-000052

PATIENT
  Sex: Male

DRUGS (6)
  1. LISINOPRIL [Interacting]
     Active Substance: LISINOPRIL
     Indication: Hypertension
     Route: 065
  2. TIZANIDINE [Interacting]
     Active Substance: TIZANIDINE
     Indication: Back pain
     Route: 065
  3. TIZANIDINE [Interacting]
     Active Substance: TIZANIDINE
     Indication: Muscle spasms
  4. METOPROLOL SUCCINATE [Concomitant]
     Active Substance: METOPROLOL SUCCINATE
     Indication: Hypertension
     Route: 065
  5. AZITHROMYCIN [Concomitant]
     Active Substance: AZITHROMYCIN
     Indication: Pneumonia
     Route: 065
  6. DOXYCYCLINE [Concomitant]
     Active Substance: DOXYCYCLINE
     Indication: Pneumonia
     Route: 065

REACTIONS (2)
  - Hypotension [Recovered/Resolved]
  - Drug interaction [Unknown]
